FAERS Safety Report 9174424 (Version 3)
Quarter: 2013Q2

REPORT INFORMATION
  Report Type: Spontaneous
  Country: US (occurrence: US)
  Receive Date: 20130320
  Receipt Date: 20130608
  Transmission Date: 20140414
  Serious: No
  Sender: FDA-Public Use
  Company Number: US-009507513-1303USA009421

PATIENT
  Age: 20 Year
  Sex: 0
  Weight: 95.24 kg

DRUGS (2)
  1. NEXPLANON [Suspect]
     Dosage: UNK
     Dates: start: 20130314
  2. NEXPLANON [Suspect]
     Dosage: UNK
     Dates: start: 20130314, end: 20130314

REACTIONS (3)
  - Device difficult to use [Unknown]
  - Product quality issue [Unknown]
  - No adverse event [Unknown]
